FAERS Safety Report 8170477-7 (Version None)
Quarter: 2012Q1

REPORT INFORMATION
  Report Type: 
  Country: None (occurrence: None)
  Receive Date: 20120228
  Receipt Date: 20120222
  Transmission Date: 20120608
  Serious: Yes (Other)
  Sender: FDA-Public Use
  Company Number: JP-PFIZER INC-2012047556

PATIENT
  Age: 59 Year
  Sex: Female

DRUGS (5)
  1. IRINOTECAN [Concomitant]
  2. LYRICA [Suspect]
     Dosage: 150 MG/DAY
     Route: 048
  3. LANSOPRAZOLE [Concomitant]
  4. LOXONIN [Concomitant]
  5. GRANISETRON [Concomitant]

REACTIONS (1)
  - ELECTROCARDIOGRAM QT PROLONGED [None]
